FAERS Safety Report 20473302 (Version 1)
Quarter: 2022Q1

REPORT INFORMATION
  Report Type: Spontaneous
  Country: US (occurrence: US)
  Receive Date: 20220215
  Receipt Date: 20220215
  Transmission Date: 20220424
  Serious: No
  Sender: FDA-Public Use
  Company Number: US-AUROBINDO-AUR-APL-2021-049556

PATIENT
  Sex: Female

DRUGS (1)
  1. LORAZEPAM [Suspect]
     Active Substance: LORAZEPAM
     Indication: Abdominal rigidity
     Dosage: UNK
     Route: 065

REACTIONS (6)
  - Abdominal rigidity [Unknown]
  - Arthralgia [Unknown]
  - Illness [Recovered/Resolved]
  - Pain [Unknown]
  - Product formulation issue [Unknown]
  - Product substitution issue [Unknown]
